FAERS Safety Report 4885661-5 (Version None)
Quarter: 2006Q1

REPORT INFORMATION
  Report Type: 
  Country: None (occurrence: None)
  Receive Date: 20060119
  Receipt Date: 20041216
  Transmission Date: 20060701
  Serious: Yes (Life-Threatening, Hospitalization, Other)
  Sender: FDA-Public Use
  Company Number: JP-ABBOTT-04P-087-0284658-00

PATIENT
  Sex: Male

DRUGS (26)
  1. KALETRA [Suspect]
     Indication: HIV INFECTION
     Route: 048
     Dates: start: 20031127, end: 20031223
  2. KALETRA [Suspect]
     Indication: ACQUIRED IMMUNODEFICIENCY SYNDROME
     Route: 048
     Dates: start: 20040210, end: 20040216
  3. NORVIR [Suspect]
     Indication: HIV INFECTION
     Route: 048
     Dates: start: 20040706, end: 20040722
  4. TACROLIMUS [Interacting]
     Indication: LIVER TRANSPLANT
     Route: 042
     Dates: start: 20040203, end: 20040211
  5. LAMIVUDINE [Suspect]
     Indication: HIV INFECTION
     Route: 048
     Dates: start: 20031127, end: 20031223
  6. LAMIVUDINE [Suspect]
     Dates: start: 20040210, end: 20040224
  7. LAMIVUDINE [Suspect]
     Dates: end: 20040722
  8. LAMIVUDINE [Suspect]
     Dates: start: 20041111
  9. ABACAVIR [Suspect]
     Indication: HIV INFECTION
     Route: 048
     Dates: start: 20031127, end: 20031223
  10. ABACAVIR [Suspect]
     Dates: start: 20040210, end: 20040224
  11. ABACAVIR [Suspect]
     Dates: end: 20040722
  12. ATAZANAVIR [Suspect]
     Indication: HIV INFECTION
     Route: 048
     Dates: start: 20040706, end: 20040722
  13. TENOFOVIR [Suspect]
     Indication: HIV INFECTION
     Route: 048
     Dates: start: 20040706, end: 20040722
  14. VALGANCICLOVIR [Concomitant]
     Indication: CYTOMEGALOVIRUS CHORIORETINITIS
     Route: 048
     Dates: start: 20041222, end: 20050202
  15. VALGANCICLOVIR [Concomitant]
     Indication: PROPHYLAXIS
  16. CLARITHROMYCIN [Concomitant]
     Indication: MYCOBACTERIUM AVIUM COMPLEX INFECTION
     Route: 048
     Dates: start: 20041013, end: 20041202
  17. AZITHROMYCIN [Concomitant]
     Indication: ANTIBIOTIC PROPHYLAXIS
     Route: 048
     Dates: start: 20041013
  18. AZITHROMYCIN [Concomitant]
     Route: 048
     Dates: start: 20041203
  19. AZITHROMYCIN [Concomitant]
     Dates: start: 20041013
  20. URSODEOXYCHOLIC ACID [Concomitant]
     Indication: HEPATITIS C
     Route: 048
     Dates: start: 20031127, end: 20031224
  21. BACTRIM [Concomitant]
     Indication: ANTIBIOTIC PROPHYLAXIS
     Route: 048
     Dates: start: 20040225
  22. CYCLOSPORINE [Concomitant]
     Indication: PROPHYLAXIS AGAINST TRANSPLANT REJECTION
     Route: 048
     Dates: start: 20040507, end: 20041103
  23. CYCLOSPORINE [Concomitant]
     Route: 048
     Dates: start: 20041104
  24. ETHANBUTOL [Concomitant]
     Indication: MYCOBACTERIUM AVIUM COMPLEX INFECTION
     Route: 048
     Dates: start: 20041013, end: 20041202
  25. INTERFERON BETA [Concomitant]
     Indication: HEPATITIS C
     Route: 058
     Dates: start: 20041119, end: 20050331
  26. TACROLIMUS [Concomitant]
     Indication: PROPHYLAXIS AGAINST TRANSPLANT REJECTION
     Dates: start: 20040227, end: 20040506

REACTIONS (7)
  - DRUG INTERACTION [None]
  - HEPATIC FUNCTION ABNORMAL [None]
  - IMMUNOSUPPRESSANT DRUG LEVEL INCREASED [None]
  - JAUNDICE [None]
  - LIVER DISORDER [None]
  - ORAL CANDIDIASIS [None]
  - SUBDURAL HAEMATOMA [None]
